FAERS Safety Report 9146837 (Version 2)
Quarter: 2013Q2

REPORT INFORMATION
  Report Type: Spontaneous
  Country: US (occurrence: US)
  Receive Date: 20130307
  Receipt Date: 20130509
  Transmission Date: 20140414
  Serious: Yes (Other)
  Sender: FDA-Public Use
  Company Number: US-ELI_LILLY_AND_COMPANY-US201302010212

PATIENT
  Age: 78 Year
  Sex: Female
  Weight: 65.31 kg

DRUGS (2)
  1. FORTEO [Suspect]
     Indication: OSTEOPOROSIS
     Dosage: 20 UG, QD
     Route: 058
     Dates: start: 20121107, end: 20130225
  2. FORTEO [Suspect]
     Dosage: 20 UG, QD
     Route: 058
     Dates: start: 20130319

REACTIONS (6)
  - Loss of consciousness [Recovered/Resolved]
  - Oxygen saturation decreased [Recovered/Resolved]
  - Heart rate increased [Recovered/Resolved]
  - Back pain [Recovered/Resolved]
  - Chest pain [Recovered/Resolved]
  - Arthralgia [Recovered/Resolved]
